FAERS Safety Report 15490993 (Version 1)
Quarter: 2018Q4

REPORT INFORMATION
  Report Type: Spontaneous
  Country: US (occurrence: US)
  Receive Date: 20181012
  Receipt Date: 20181012
  Transmission Date: 20190205
  Serious: No
  Sender: FDA-Public Use
  Company Number: US-BION-006915

PATIENT
  Sex: Female

DRUGS (1)
  1. PROGESTERONE BION [Suspect]
     Active Substance: PROGESTERONE
     Indication: SUPPORTIVE CARE
     Dosage: STRENGTH: 200 MG
     Route: 067

REACTIONS (6)
  - Product prescribing error [Not Recovered/Not Resolved]
  - Product colour issue [Unknown]
  - Vaginal discharge [Unknown]
  - Contraindicated product administered [Not Recovered/Not Resolved]
  - Exposure during pregnancy [Unknown]
  - Incorrect route of product administration [Not Recovered/Not Resolved]
